FAERS Safety Report 13704852 (Version 4)
Quarter: 2017Q4

REPORT INFORMATION
  Report Type: Report from Study
  Country: CA (occurrence: CA)
  Receive Date: 20170630
  Receipt Date: 20171109
  Transmission Date: 20180320
  Serious: Yes (Death, Hospitalization, Other)
  Sender: FDA-Public Use
  Company Number: PHHY2012CA063338

PATIENT
  Sex: Female

DRUGS (4)
  1. SANDOSTATIN LAR DEPOT [Suspect]
     Active Substance: OCTREOTIDE ACETATE
     Indication: CARCINOID TUMOUR
     Dosage: 50 MG, QMO (EVERY 4 WEEKS)
     Route: 030
     Dates: start: 20051215
  2. SANDOSTATIN LAR DEPOT [Suspect]
     Active Substance: OCTREOTIDE ACETATE
     Dosage: 60 MG, QMO (EVERY 4 WEEKS)
     Route: 030
     Dates: start: 20140926
  3. SANDOSTATIN LAR DEPOT [Suspect]
     Active Substance: OCTREOTIDE ACETATE
     Dosage: UNK
     Route: 030
     Dates: start: 20171012
  4. SANDOSTATIN LAR DEPOT [Suspect]
     Active Substance: OCTREOTIDE ACETATE
     Dosage: 60 MG, QMO (EVERY 4 WEEKS)
     Route: 030

REACTIONS (8)
  - Blood pressure systolic increased [Unknown]
  - Body temperature increased [Unknown]
  - Fatigue [Unknown]
  - Platelet count decreased [Unknown]
  - Asthenia [Recovering/Resolving]
  - Death [Fatal]
  - Haemoglobin decreased [Unknown]
  - Needle issue [Unknown]

NARRATIVE: CASE EVENT DATE: 2014
